FAERS Safety Report 4873865-7 (Version None)
Quarter: 2006Q1

REPORT INFORMATION
  Report Type: 
  Country: None (occurrence: None)
  Receive Date: 20060104
  Receipt Date: 20051128
  Transmission Date: 20060701
  Serious: Yes (Death, Life-Threatening, Other)
  Sender: FDA-Public Use
  Company Number: USA-2005-0021690

PATIENT
  Age: 49 Year
  Sex: Male

DRUGS (1)
  1. OXYCONTIN [Suspect]
     Indication: CANCER PAIN
     Dosage: 240 MG, Q12H
     Dates: start: 20050922, end: 20051020

REACTIONS (6)
  - APHAGIA [None]
  - DRUG INEFFECTIVE [None]
  - INADEQUATE ANALGESIA [None]
  - INCORRECT ROUTE OF DRUG ADMINISTRATION [None]
  - MALIGNANT NEOPLASM PROGRESSION [None]
  - MEDICATION RESIDUE [None]
